FAERS Safety Report 21184846 (Version 1)
Quarter: 2022Q3

REPORT INFORMATION
  Report Type: Spontaneous
  Country: US (occurrence: None)
  Receive Date: 20220808
  Receipt Date: 20220808
  Transmission Date: 20221026
  Serious: Yes (Hospitalization)
  Sender: FDA-Public Use
  Company Number: None

PATIENT
  Sex: Female

DRUGS (1)
  1. MAKENA [Suspect]
     Active Substance: HYDROXYPROGESTERONE CAPROATE
     Indication: Pregnancy
     Dosage: 275MG/1.1M EVERY WEEK SUBCUTANEOUS
     Route: 058
     Dates: start: 20220718

REACTIONS (2)
  - Nausea [None]
  - Exposure during pregnancy [None]
